FAERS Safety Report 17918677 (Version 1)
Quarter: 2020Q2

REPORT INFORMATION
  Report Type: Spontaneous
  Country: US (occurrence: US)
  Receive Date: 20200619
  Receipt Date: 20200619
  Transmission Date: 20200714
  Serious: Yes (Other)
  Sender: FDA-Public Use
  Company Number: US-SHIRE-US202019409

PATIENT
  Age: 91 Year
  Sex: Female

DRUGS (1)
  1. FEIBA NF [Suspect]
     Active Substance: ANTI-INHIBITOR COAGULANT COMPLEX
     Indication: GASTROINTESTINAL HAEMORRHAGE
     Route: 042

REACTIONS (4)
  - Product administration error [Unknown]
  - Aspiration [Unknown]
  - Tissue infiltration [Unknown]
  - Skin necrosis [Unknown]

NARRATIVE: CASE EVENT DATE: 20200609
